FAERS Safety Report 12702287 (Version 2)
Quarter: 2016Q3

REPORT INFORMATION
  Report Type: Report from Study
  Country: GB (occurrence: GB)
  Receive Date: 20160831
  Receipt Date: 20160923
  Transmission Date: 20161109
  Serious: Yes (Life-Threatening, Hospitalization, Disabling, Other)
  Sender: FDA-Public Use
  Company Number: GB-ELI_LILLY_AND_COMPANY-GB201608013415

PATIENT
  Age: 34 Year
  Sex: Female
  Weight: 82 kg

DRUGS (5)
  1. PHYTOMENADIONE W/UREA [Concomitant]
     Active Substance: PHYTONADIONE\UREA
     Indication: RASH
     Dosage: UNK
     Route: 061
     Dates: start: 20160726
  2. FERROUS SULFATE. [Concomitant]
     Active Substance: FERROUS SULFATE
     Indication: ANAEMIA
     Dosage: 200 MG, UNK
     Route: 048
     Dates: start: 20160720, end: 20160728
  3. CETUXIMAB [Suspect]
     Active Substance: CETUXIMAB
     Indication: BLADDER CANCER
     Dosage: 500 MG, UNKNOWN
     Route: 042
     Dates: start: 20160620, end: 20160704
  4. 5-FLUOROURACIL [Suspect]
     Active Substance: FLUOROURACIL
     Indication: BLADDER CANCER
     Dosage: 4900 MG, UNKNOWN
     Route: 042
     Dates: start: 20160627, end: 20160627
  5. MITOMYCIN. [Suspect]
     Active Substance: MITOMYCIN
     Indication: BLADDER CANCER
     Dosage: 23 MG, UNKNOWN
     Route: 065
     Dates: start: 20160627, end: 20160627

REACTIONS (2)
  - Respiratory failure [Unknown]
  - Interstitial lung disease [Not Recovered/Not Resolved]

NARRATIVE: CASE EVENT DATE: 20160728
